FAERS Safety Report 20225193 (Version 1)
Quarter: 2021Q4

REPORT INFORMATION
  Report Type: Spontaneous
  Country: FR (occurrence: FR)
  Receive Date: 20211223
  Receipt Date: 20211223
  Transmission Date: 20220303
  Serious: Yes (Other)
  Sender: FDA-Public Use
  Company Number: FR-AFSSAPS-TO20219221

PATIENT
  Age: 43 Year
  Sex: Female

DRUGS (2)
  1. CETIRIZINE [Suspect]
     Active Substance: CETIRIZINE HYDROCHLORIDE
     Indication: Conjunctivitis allergic
     Dosage: LONG COURS ()
     Route: 048
     Dates: end: 20210818
  2. OXETORONE [Suspect]
     Active Substance: OXETORONE
     Indication: Migraine
     Dosage: 60 MILLIGRAM, DAILY
     Route: 048
     Dates: start: 201801, end: 20210818

REACTIONS (2)
  - Hepatic cytolysis [Recovered/Resolved]
  - Gamma-glutamyltransferase increased [Recovering/Resolving]

NARRATIVE: CASE EVENT DATE: 20181101
